FAERS Safety Report 20889155 (Version 4)
Quarter: 2022Q4

REPORT INFORMATION
  Report Type: Report from Study
  Country: US (occurrence: US)
  Receive Date: 20220530
  Receipt Date: 20221015
  Transmission Date: 20230113
  Serious: Yes (Hospitalization)
  Sender: FDA-Public Use
  Company Number: US-ABBVIE-22K-163-4414374-00

PATIENT
  Age: 70 Year
  Sex: Female

DRUGS (1)
  1. IMBRUVICA [Suspect]
     Active Substance: IBRUTINIB
     Indication: Chronic lymphocytic leukaemia
     Route: 048
     Dates: start: 202003

REACTIONS (8)
  - Knee arthroplasty [Unknown]
  - Urinary incontinence [Unknown]
  - Blood cholesterol increased [Unknown]
  - Fatigue [Unknown]
  - Constipation [Unknown]
  - Stress [Unknown]
  - Dyspnoea exertional [Unknown]
  - Muscle spasms [Unknown]

NARRATIVE: CASE EVENT DATE: 20220502
